FAERS Safety Report 4386548-7 (Version None)
Quarter: 2004Q2

REPORT INFORMATION
  Report Type: 
  Country: None (occurrence: None)
  Receive Date: 20040623
  Receipt Date: 20040608
  Transmission Date: 20050107
  Serious: Yes (Hospitalization)
  Sender: FDA-Public Use
  Company Number: 2004-02540

PATIENT
  Age: 33 Year
  Sex: Female
  Weight: 86.4 kg

DRUGS (12)
  1. INFED [Suspect]
     Indication: IRON DEFICIENCY ANAEMIA
     Dosage: SEE IMAGE
     Route: 042
     Dates: start: 20040531, end: 20040531
  2. INFED [Suspect]
     Indication: IRON DEFICIENCY ANAEMIA
     Dosage: SEE IMAGE
     Route: 042
     Dates: start: 20040531, end: 20040531
  3. EFFEXOR [Concomitant]
  4. LEVOTHYROXINE SODIUM [Concomitant]
  5. AMBIEN [Concomitant]
  6. ZOFRAN [Concomitant]
  7. XANAX [Concomitant]
  8. ZOLOFT [Concomitant]
  9. MULTI-VITAMINS [Concomitant]
  10. PREDNISONE [Concomitant]
  11. PYRIDIUM [Concomitant]
  12. HYDROCORTISONE [Concomitant]

REACTIONS (4)
  - INJECTION SITE PAIN [None]
  - INJECTION SITE SWELLING [None]
  - THROMBOPHLEBITIS SUPERFICIAL [None]
  - URINARY RETENTION [None]
